FAERS Safety Report 6282647-3 (Version None)
Quarter: 2009Q3

REPORT INFORMATION
  Report Type: 
  Country: None (occurrence: None)
  Receive Date: 20090724
  Receipt Date: 20090720
  Transmission Date: 20100115
  Serious: Yes (Death)
  Sender: FDA-Public Use
  Company Number: PHHY2009US29809

PATIENT
  Age: 78 Year
  Sex: Male

DRUGS (1)
  1. OCTREOTIDE ACETATE [Suspect]
     Dosage: TWO DOSES 8 HOURS APART

REACTIONS (1)
  - PNEUMONIA ASPIRATION [None]
